FAERS Safety Report 7909503-6 (Version None)
Quarter: 2011Q4

REPORT INFORMATION
  Report Type: 
  Country: None (occurrence: None)
  Receive Date: 20111111
  Receipt Date: 20111108
  Transmission Date: 20120403
  Serious: Yes (Other)
  Sender: FDA-Public Use
  Company Number: JP-AMGEN-JPNCT2011022432

PATIENT
  Age: 40 Year
  Sex: Female

DRUGS (12)
  1. ABRAXANE [Concomitant]
     Dosage: UNK
     Dates: start: 20110120
  2. DENOSUMAB [Suspect]
     Indication: METASTASES TO BONE
     Dosage: UNK
     Dates: start: 20090810, end: 20100705
  3. LOXONIN [Concomitant]
     Dosage: 60 MG, QD
     Route: 048
  4. DEXAMETHASONE SODIUM PHOSPHATE [Concomitant]
     Dosage: UNK UNK, QD
     Route: 042
     Dates: start: 20081215, end: 20100705
  5. CYCLOPHOSPHAMIDE [Concomitant]
     Dosage: UNK
     Dates: start: 20100826, end: 20100826
  6. TAXOL [Concomitant]
     Dosage: UNK
     Dates: start: 20100917, end: 20101222
  7. FLUMETHOLON [Concomitant]
     Dosage: UNK
     Dates: start: 20090826, end: 20090902
  8. AROMASIN [Concomitant]
     Dosage: UNK
     Dates: start: 20100706, end: 20100825
  9. FLUOROURACIL [Concomitant]
     Dosage: UNK
     Dates: start: 20100826, end: 20100826
  10. EPIRUBICIN [Concomitant]
     Dosage: UNK
     Dates: start: 20100826, end: 20100826
  11. GEMZAR [Concomitant]
     Dosage: UNK
     Dates: start: 20100517, end: 20100705
  12. FARESTON [Concomitant]
     Dosage: UNK
     Dates: start: 20090923, end: 20100516

REACTIONS (4)
  - ALVEOLAR OSTEITIS [None]
  - PERIODONTITIS [None]
  - OSTEOMYELITIS [None]
  - EXPOSED BONE IN JAW [None]
